FAERS Safety Report 15297987 (Version 9)
Quarter: 2019Q4

REPORT INFORMATION
  Report Type: Spontaneous
  Country: CA (occurrence: CA)
  Receive Date: 20180820
  Receipt Date: 20191014
  Transmission Date: 20200122
  Serious: Yes (Other)
  Sender: FDA-Public Use
  Company Number: CA-CELLTRION INC.-2018CA021736

PATIENT

DRUGS (13)
  1. INFLECTRA [Suspect]
     Active Substance: INFLIXIMAB-DYYB
     Dosage: 400 MG, 0, 2, 6, THEN EVERY 8 WEEKS
     Route: 042
     Dates: start: 20180404, end: 20180531
  2. PREDNISONE. [Concomitant]
     Active Substance: PREDNISONE
     Dosage: 40 MG, 1X/DAY, TAPER TO 0 MG
     Route: 048
  3. SALOFALK [Concomitant]
     Dosage: UNK, FOR 2 WEEKS
  4. INFLECTRA [Suspect]
     Active Substance: INFLIXIMAB-DYYB
     Dosage: 600 MG, EVERY 8 WEEKS
     Route: 042
     Dates: start: 20190116
  5. IMURAN [Concomitant]
     Active Substance: AZATHIOPRINE
     Dosage: 150 MG, DAILY
  6. INFLECTRA [Suspect]
     Active Substance: INFLIXIMAB-DYYB
     Indication: COLITIS ULCERATIVE
     Dosage: UNK
     Route: 042
     Dates: start: 201801
  7. INFLECTRA [Suspect]
     Active Substance: INFLIXIMAB-DYYB
     Dosage: 600 MG, EVERY 8 WEEKS
     Route: 042
     Dates: start: 20181120, end: 20181120
  8. IMURAN [Concomitant]
     Active Substance: AZATHIOPRINE
     Dosage: 50 MG, 1X/DAY FOR 4 YEARS
     Route: 048
  9. INFLECTRA [Suspect]
     Active Substance: INFLIXIMAB-DYYB
     Dosage: 400 MG, 0, 2, 6, THEN EVERY 8 WEEKS
     Route: 042
     Dates: start: 20180221, end: 20180531
  10. INFLECTRA [Suspect]
     Active Substance: INFLIXIMAB-DYYB
     Dosage: 600 MG, EVERY 8 WEEKS
     Route: 042
     Dates: start: 20190313
  11. INFLECTRA [Suspect]
     Active Substance: INFLIXIMAB-DYYB
     Dosage: 600 MG, EVERY 8 WEEKS
     Route: 042
     Dates: start: 20180724, end: 20190116
  12. INFLECTRA [Suspect]
     Active Substance: INFLIXIMAB-DYYB
     Dosage: UNK
     Route: 042
     Dates: start: 20190509
  13. INFLECTRA [Suspect]
     Active Substance: INFLIXIMAB-DYYB
     Dosage: UNK
     Route: 042
     Dates: start: 20190704

REACTIONS (7)
  - Heart rate irregular [Unknown]
  - Drug level decreased [Unknown]
  - Immunosuppression [Unknown]
  - Condition aggravated [Unknown]
  - Therapeutic response decreased [Recovered/Resolved]
  - Faecal calprotectin increased [Recovering/Resolving]
  - Weight increased [Unknown]

NARRATIVE: CASE EVENT DATE: 201806
